FAERS Safety Report 5316844-8 (Version None)
Quarter: 2007Q2

REPORT INFORMATION
  Report Type: 
  Country: None (occurrence: None)
  Receive Date: 20070501
  Receipt Date: 20070501
  Transmission Date: 20071010
  Serious: Yes (Hospitalization)
  Sender: FDA-Public Use
  Company Number: None

PATIENT
  Age: 80 Year
  Sex: Male

DRUGS (1)
  1. PHENYTOIN [Suspect]
     Indication: CONVULSION
     Dosage: 100MG TID PO
     Route: 048
     Dates: start: 19990812, end: 20070423

REACTIONS (6)
  - DIZZINESS [None]
  - DRUG TOXICITY [None]
  - FALL [None]
  - INCORRECT DOSE ADMINISTERED [None]
  - TREMOR [None]
  - VISION BLURRED [None]
